FAERS Safety Report 24893828 (Version 1)
Quarter: 2025Q1

REPORT INFORMATION
  Report Type: Spontaneous
  Country: JP (occurrence: JP)
  Receive Date: 20250128
  Receipt Date: 20250128
  Transmission Date: 20250409
  Serious: Yes (Death)
  Sender: MYLAN
  Company Number: JP-VIATRISJAPAN-2025M1007243AA

PATIENT
  Age: 4 Year
  Sex: Female

DRUGS (3)
  1. CELECOXIB [Suspect]
     Active Substance: CELECOXIB
     Indication: Rhabdomyosarcoma
     Route: 065
  2. ETOPOSIDE [Suspect]
     Active Substance: ETOPOSIDE
     Indication: Rhabdomyosarcoma
     Dosage: 25 MILLIGRAM/SQ. METER, QD
     Route: 048
  3. TEMOZOLOMIDE [Suspect]
     Active Substance: TEMOZOLOMIDE
     Indication: Rhabdomyosarcoma
     Dosage: 90 MILLIGRAM/SQ. METER, QD
     Route: 048

REACTIONS (2)
  - Disease progression [Fatal]
  - Drug ineffective [Fatal]
